FAERS Safety Report 12862078 (Version 1)
Quarter: 2016Q4

REPORT INFORMATION
  Report Type: Spontaneous
  Country: US (occurrence: US)
  Receive Date: 20161018
  Receipt Date: 20161018
  Transmission Date: 20170207
  Serious: Yes (Hospitalization)
  Sender: FDA-Public Use
  Company Number: None

PATIENT
  Age: 5 Month
  Sex: Male
  Weight: 85.95 kg

DRUGS (1)
  1. IMPAVIDO [Suspect]
     Active Substance: MILTEFOSINE
     Indication: LEISHMANIASIS
     Route: 048
     Dates: start: 20160801, end: 20160808

REACTIONS (7)
  - Nausea [None]
  - Pruritus [None]
  - Dizziness [None]
  - Vomiting [None]
  - Decreased appetite [None]
  - Diarrhoea [None]
  - Headache [None]

NARRATIVE: CASE EVENT DATE: 20160812
